FAERS Safety Report 11225999 (Version 1)
Quarter: 2015Q2

REPORT INFORMATION
  Report Type: Report from Study
  Country: JP (occurrence: JP)
  Receive Date: 20150629
  Receipt Date: 20150629
  Transmission Date: 20150821
  Serious: Yes (Hospitalization, Other)
  Sender: FDA-Public Use
  Company Number: JP-PFIZER INC-2015118291

PATIENT
  Age: 74 Year
  Sex: Male
  Weight: 53 kg

DRUGS (16)
  1. ADONA [Concomitant]
     Active Substance: CARBAZOCHROME SODIUM SULFONATE
     Indication: POST PROCEDURAL COMPLICATION
     Dosage: 200 MG, DAILY
     Dates: start: 20131025, end: 20131025
  2. CEFAZOLIN [Concomitant]
     Active Substance: CEFAZOLIN
     Indication: PROPHYLAXIS
     Dosage: 2 G, DAILY
     Dates: start: 20131025
  3. RINDERON V [Concomitant]
     Active Substance: BETAMETHASONE VALERATE
     Indication: POST PROCEDURAL COMPLICATION
     Dosage: 8 MG, DAILY
     Dates: start: 20131025
  4. NICARDIPINE [Concomitant]
     Active Substance: NICARDIPINE
     Indication: HYPERTENSION
     Dosage: 100 MG, DAILY
     Dates: start: 20131025
  5. AMLODIN [Concomitant]
     Active Substance: AMLODIPINE BESYLATE
     Dosage: 10 MG, DAILY
     Route: 048
  6. TRANSAMIN [Concomitant]
     Active Substance: TRANEXAMIC ACID
     Indication: POST PROCEDURAL COMPLICATION
     Dosage: 2000 MG, DAILY
     Dates: start: 20131025, end: 20131025
  7. TRAMCET [Concomitant]
     Active Substance: ACETAMINOPHEN\TRAMADOL
     Indication: NEUROBLASTOMA
  8. MYSLEE [Concomitant]
     Active Substance: ZOLPIDEM TARTRATE
     Indication: NEUROBLASTOMA
  9. FOSPHENYTOIN SODIUM. [Suspect]
     Active Substance: FOSPHENYTOIN SODIUM
     Dosage: 8.5 MG/KG, ADMINISTRATION RATE: 7.5MG/MIN WITH 0.9% PHYSIOLOGICAL SALINE (10-FOLD DILUTION)
     Dates: start: 20131027, end: 20131027
  10. NEXIUM [Concomitant]
     Active Substance: ESOMEPRAZOLE MAGNESIUM
     Indication: PROPHYLAXIS
     Dosage: 20 MG, DAILY
     Route: 048
  11. MYSLEE [Concomitant]
     Active Substance: ZOLPIDEM TARTRATE
     Indication: SLEEP DISORDER
     Dosage: 5 MG, DAILY
     Route: 048
  12. FOSPHENYTOIN SODIUM. [Suspect]
     Active Substance: FOSPHENYTOIN SODIUM
     Indication: CONVULSION PROPHYLAXIS
     Dosage: 18.8 MG/KG, ADMINISTRATION RATE: 17MG/MIN WITH 0.9% PHYSIOLOGICAL SALINE (10-FOLD DILUTION)
     Dates: start: 20131025, end: 20131025
  13. GASTER [Concomitant]
     Active Substance: FAMOTIDINE
     Indication: PROPHYLAXIS
     Dosage: 40 MG, DAILY
     Dates: start: 20131025
  14. FOSPHENYTOIN SODIUM. [Suspect]
     Active Substance: FOSPHENYTOIN SODIUM
     Dosage: 8.5 MG/KG, ADMINISTRATION RATE: 7.5MG/MIN WITH 0.9% PHYSIOLOGICAL SALINE (10-FOLD DILUTION)
     Dates: start: 20131026, end: 20131026
  15. SELENICA [Concomitant]
     Active Substance: SELENIUM
     Indication: EPILEPSY
     Dosage: 800 MG, DAILY
     Route: 048
     Dates: start: 20131026
  16. TRAMCET [Concomitant]
     Active Substance: ACETAMINOPHEN\TRAMADOL
     Indication: HEADACHE
     Dosage: 4 TABLETS/DAY
     Route: 048

REACTIONS (4)
  - Hemiplegia [Recovering/Resolving]
  - Restlessness [Recovering/Resolving]
  - Hypertensive emergency [Recovering/Resolving]
  - Hepatic function abnormal [Recovering/Resolving]

NARRATIVE: CASE EVENT DATE: 20131025
